FAERS Safety Report 8299785-6 (Version None)
Quarter: 2012Q2

REPORT INFORMATION
  Report Type: 
  Country: None (occurrence: None)
  Receive Date: 20120419
  Receipt Date: 20120419
  Transmission Date: 20120825
  Serious: Yes (Hospitalization)
  Sender: FDA-Public Use
  Company Number: None

PATIENT
  Age: 41 Year
  Sex: Female
  Weight: 121.1 kg

DRUGS (1)
  1. COTRIM [Suspect]
     Dosage: 160/800 -DS-
     Route: 048
     Dates: start: 20111129, end: 20111209

REACTIONS (1)
  - LEUKOCYTOCLASTIC VASCULITIS [None]
